FAERS Safety Report 7711901-0 (Version None)
Quarter: 2011Q3

REPORT INFORMATION
  Report Type: 
  Country: None (occurrence: None)
  Receive Date: 20110826
  Receipt Date: 20110818
  Transmission Date: 20111222
  Serious: Yes (Life-Threatening)
  Sender: FDA-Public Use
  Company Number: JP-BRISTOL-MYERS SQUIBB COMPANY-15849474

PATIENT
  Age: 69 Year
  Sex: Female

DRUGS (5)
  1. AVAPRO [Concomitant]
     Dates: start: 20110301
  2. AMARYL [Concomitant]
     Dates: start: 20110301
  3. JANUVIA [Concomitant]
     Dates: start: 20110501
  4. METFORMIN HCL [Suspect]
     Indication: DIABETES MELLITUS
     Route: 048
     Dates: start: 20110601, end: 20110602
  5. ATELEC [Concomitant]
     Dates: start: 20110401

REACTIONS (1)
  - BRAIN STEM INFARCTION [None]
